FAERS Safety Report 7428792-8 (Version None)
Quarter: 2011Q2

REPORT INFORMATION
  Report Type: 
  Country: None (occurrence: None)
  Receive Date: 20110421
  Receipt Date: 20110412
  Transmission Date: 20111010
  Serious: Yes (Other)
  Sender: FDA-Public Use
  Company Number: JP-BRISTOL-MYERS SQUIBB COMPANY-15674013

PATIENT
  Age: 73 Year
  Sex: Male
  Weight: 51 kg

DRUGS (5)
  1. ERBITUX [Suspect]
     Indication: COLON CANCER
     Dosage: 600MG TILL 15FEB11, DOSE REDUCED TO 400MG FROM 22FEB11 AND THEN WITHDRAWN ON 8MAR2011 NO OF INF:4
     Route: 042
     Dates: start: 20110215, end: 20110308
  2. DEXART [Concomitant]
     Indication: PREMEDICATION
     Route: 042
     Dates: start: 20110215
  3. MINOMYCIN [Concomitant]
  4. STEROIDS [Concomitant]
  5. CHLOR-TRIMETON [Concomitant]
     Indication: PREMEDICATION
     Route: 042
     Dates: start: 20110215

REACTIONS (2)
  - HYPOALBUMINAEMIA [None]
  - PROTEINURIA [None]
